FAERS Safety Report 18258430 (Version 1)
Quarter: 2020Q3

REPORT INFORMATION
  Report Type: Other
  Country: US (occurrence: US)
  Receive Date: 20200911
  Receipt Date: 20200911
  Transmission Date: 20201103
  Serious: No
  Sender: FDA-Public Use
  Company Number: US-LEADIANT BIOSCIENCES INC-2019STPI000611

PATIENT
  Age: 41 Year
  Sex: Female

DRUGS (9)
  1. MATULANE [Suspect]
     Active Substance: PROCARBAZINE HYDROCHLORIDE
     Indication: BRAIN NEOPLASM MALIGNANT
     Dosage: 50 MILLIGRAM TWO CAPSULES QD ON DAYS 8?17, THEN THREE CAPSULES DAILY WITH MEAL ON DAYS 18?21 EVERY 4
     Route: 048
     Dates: start: 20190814
  2. B COMPLEX B12 [Concomitant]
  3. PROMETHAZINE [Concomitant]
     Active Substance: PROMETHAZINE HYDROCHLORIDE
  4. LEVETIRACETAM. [Concomitant]
     Active Substance: LEVETIRACETAM
  5. LOMUSTINE. [Concomitant]
     Active Substance: LOMUSTINE
  6. ONDANSETRON [Concomitant]
     Active Substance: ONDANSETRON
  7. MULTIPLE VITAMINS [Concomitant]
     Active Substance: VITAMINS
  8. NORETHINDRONE ACETATE. [Concomitant]
     Active Substance: NORETHINDRONE ACETATE
  9. TYLENOL [Concomitant]
     Active Substance: ACETAMINOPHEN

REACTIONS (1)
  - Nausea [Not Recovered/Not Resolved]

NARRATIVE: CASE EVENT DATE: 20191206
